FAERS Safety Report 14430644 (Version 2)
Quarter: 2018Q1

REPORT INFORMATION
  Report Type: Report from Study
  Country: US (occurrence: US)
  Receive Date: 20180124
  Receipt Date: 20180319
  Transmission Date: 20180509
  Serious: Yes (Hospitalization)
  Sender: FDA-Public Use
  Company Number: US-GILEAD-2018-0316785

PATIENT
  Age: 59 Year
  Sex: Female

DRUGS (2)
  1. MYCOPHENOLATE [Concomitant]
     Active Substance: MYCOPHENOLIC ACID
  2. AMBRISENTAN [Suspect]
     Active Substance: AMBRISENTAN
     Indication: PRODUCT USED FOR UNKNOWN INDICATION
     Dosage: 5 MG, UNK
     Route: 065
     Dates: start: 20170601

REACTIONS (6)
  - Procedural hypotension [Unknown]
  - Haemoglobin decreased [Unknown]
  - Colonoscopy [Unknown]
  - Pyrexia [Unknown]
  - Haematocrit decreased [Unknown]
  - Infection [Unknown]
